FAERS Safety Report 23722835 (Version 1)
Quarter: 2024Q2

REPORT INFORMATION
  Report Type: Spontaneous
  Country: CN (occurrence: CN)
  Receive Date: 20240409
  Receipt Date: 20240409
  Transmission Date: 20240715
  Serious: Yes (Other)
  Sender: FDA-Public Use
  Company Number: CN-PFIZER INC-202400080437

PATIENT
  Age: 76 Year
  Sex: Male
  Weight: 58 kg

DRUGS (3)
  1. LINEZOLID [Suspect]
     Active Substance: LINEZOLID
     Indication: Inflammation
     Dosage: 0.6 G, 2X/DAY
  2. VORICONAZOLE [Suspect]
     Active Substance: VORICONAZOLE
     Indication: Inflammation
     Dosage: 0.2 G, 2X/DAY
  3. BIAPENEM [Concomitant]
     Active Substance: BIAPENEM
     Indication: Inflammation
     Dosage: 0.3 G, 3X/DAY

REACTIONS (4)
  - Drug ineffective [Unknown]
  - C-reactive protein increased [Recovering/Resolving]
  - White blood cell count increased [Recovering/Resolving]
  - Alanine aminotransferase increased [Recovered/Resolved]

NARRATIVE: CASE EVENT DATE: 20240324
